FAERS Safety Report 19707146 (Version 1)
Quarter: 2021Q3

REPORT INFORMATION
  Report Type: Spontaneous
  Country: US (occurrence: US)
  Receive Date: 20210817
  Receipt Date: 20210817
  Transmission Date: 20211014
  Serious: Yes (Life-Threatening, Hospitalization)
  Sender: FDA-Public Use
  Company Number: US-MYLANLABS-2021M1051109

PATIENT
  Age: 16 Year
  Sex: Male

DRUGS (1)
  1. SULPHAMETHOXAZOLE/TRIMETHOPRIM [Suspect]
     Active Substance: SULFAMETHOXAZOLE\TRIMETHOPRIM
     Indication: PILONIDAL CYST
     Dosage: UNK
     Route: 048

REACTIONS (7)
  - Shock [Recovering/Resolving]
  - Renal injury [Recovering/Resolving]
  - Accidental exposure to product [Unknown]
  - Hypoxia [Recovering/Resolving]
  - Acute generalised exanthematous pustulosis [Recovering/Resolving]
  - Circulatory collapse [Recovering/Resolving]
  - Liver injury [Recovering/Resolving]
